FAERS Safety Report 8881728 (Version 1)
Quarter: 2012Q4

REPORT INFORMATION
  Report Type: 
  Country: FI (occurrence: FI)
  Receive Date: 20121101
  Receipt Date: 20121101
  Transmission Date: 20130627
  Serious: Yes (Other)
  Sender: FDA-Public Use
  Company Number: FI-ROCHE-1140636

PATIENT
  Sex: Female

DRUGS (4)
  1. AVASTIN [Suspect]
     Indication: OVARIAN CANCER
     Dosage: 1100 MG
     Route: 042
     Dates: start: 20110926
  2. CARBOPLATIN [Concomitant]
     Indication: OVARIAN CANCER
     Route: 065
  3. TAXOL [Concomitant]
     Indication: OVARIAN CANCER
     Route: 065
  4. ANTIHYPERTENSIVE NOS [Concomitant]
     Indication: HYPERTENSION

REACTIONS (5)
  - Blood pressure increased [Recovered/Resolved]
  - Headache [Recovered/Resolved]
  - Malaise [Unknown]
  - Speech disorder [Recovered/Resolved]
  - Transient ischaemic attack [Recovered/Resolved]
